FAERS Safety Report 10379769 (Version 1)
Quarter: 2014Q1

REPORT INFORMATION
  Report Type: Spontaneous
  Country: US (occurrence: None)
  Receive Date: 20140306
  Receipt Date: 20140306
  Transmission Date: 20141002
  Serious: Yes (Hospitalization)
  Sender: FDA-Public Use
  Company Number: 163-21880-13013327

PATIENT
  Age: 57 Year
  Sex: Female

DRUGS (8)
  1. REVLIMID (LENALIDOMIDE) [Suspect]
     Indication: PLASMA CELL MYELOMA
     Route: 048
     Dates: start: 201101
  2. REVLIMID (LENALIDOMIDE) [Suspect]
     Route: 048
     Dates: start: 201101
  3. ASPIRIN (ACETYLSALICYLIC ACID) (ENTERIC-COATED TABLET) [Concomitant]
  4. LISINOPRIL [Concomitant]
  5. MICROZIDE (HYDROCHLOROTHIAZIDE) [Concomitant]
  6. POTASSIUM [Concomitant]
  7. QUINAPRIL HCL [Concomitant]
  8. TOPROL XL (METOPROLOL SUCCINATE) [Concomitant]

REACTIONS (1)
  - Dehydration [None]
